FAERS Safety Report 6329289-9 (Version None)
Quarter: 2009Q3

REPORT INFORMATION
  Report Type: 
  Country: None (occurrence: None)
  Receive Date: 20090826
  Receipt Date: 20090821
  Transmission Date: 20100115
  Serious: Yes (Death)
  Sender: FDA-Public Use
  Company Number: BR-MEDIMMUNE-MEDI-0008798

PATIENT
  Sex: Female
  Weight: 2.68 kg

DRUGS (1)
  1. SYNAGIS [Suspect]

REACTIONS (1)
  - BRONCHIOLITIS [None]
